FAERS Safety Report 9226105 (Version 1)
Quarter: 2013Q1

REPORT INFORMATION
  Report Type: Spontaneous
  Country: US (occurrence: None)
  Receive Date: 20120921
  Receipt Date: 20120921
  Transmission Date: 20140127
  Serious: No
  Sender: FDA-Public Use
  Company Number: PT12-101-AE

PATIENT
  Age: 59 Year
  Sex: Female
  Weight: 57.15 kg

DRUGS (1)
  1. FOLIC ACID [Suspect]
     Indication: BLOOD FOLATE DECREASED
     Dosage: 1 TABLET
     Route: 048
     Dates: start: 2012, end: 20120404

REACTIONS (2)
  - Dyspnoea [None]
  - Swollen tongue [None]
